FAERS Safety Report 21330891 (Version 2)
Quarter: 2022Q4

REPORT INFORMATION
  Report Type: Spontaneous
  Country: DE (occurrence: None)
  Receive Date: 20220914
  Receipt Date: 20221108
  Transmission Date: 20230113
  Serious: Yes (Hospitalization)
  Sender: FDA-Public Use
  Company Number: DE-ROCHE-3143733

PATIENT
  Age: 41 Year
  Sex: Female
  Weight: 74 kg

DRUGS (2)
  1. OCREVUS [Suspect]
     Active Substance: OCRELIZUMAB
     Indication: Multiple sclerosis
     Route: 042
     Dates: start: 20210920
  2. OCREVUS [Suspect]
     Active Substance: OCRELIZUMAB
     Route: 042
     Dates: start: 20220516

REACTIONS (2)
  - Inflammatory myofibroblastic tumour [Recovered/Resolved]
  - B-lymphocyte count decreased [Unknown]

NARRATIVE: CASE EVENT DATE: 20220401
